FAERS Safety Report 6523121-6 (Version None)
Quarter: 2009Q4

REPORT INFORMATION
  Report Type: 
  Country: None (occurrence: None)
  Receive Date: 20091222
  Receipt Date: 20091210
  Transmission Date: 20100525
  Serious: Yes (Hospitalization)
  Sender: FDA-Public Use
  Company Number: 234141J09USA

PATIENT
  Age: 51 Year
  Sex: Female

DRUGS (3)
  1. REBIF [Suspect]
     Indication: MULTIPLE SCLEROSIS
     Dosage: 44 MCG, 3 IN 1 WEEKS, SUBCUTANEOUS
     Route: 058
     Dates: start: 20050808, end: 20080101
  2. LAMICTAL [Concomitant]
  3. ANTIDEPRESSANT (ANTIDEPRESSANTS) [Concomitant]

REACTIONS (3)
  - APPENDICITIS [None]
  - BLOOD DISORDER [None]
  - INFECTION [None]
